FAERS Safety Report 9369419 (Version 1)
Quarter: 2013Q2

REPORT INFORMATION
  Report Type: Spontaneous
  Country: JP (occurrence: None)
  Receive Date: 20130621
  Receipt Date: 20130621
  Transmission Date: 20140414
  Serious: Yes (Hospitalization, Other)
  Sender: FDA-Public Use
  Company Number: TCI2012A07160

PATIENT
  Age: 70 Year
  Sex: Female

DRUGS (3)
  1. NESINA [Suspect]
     Indication: DIABETES MELLITUS
     Route: 048
  2. SULFONAMIDES, UREA DERIVATIVES [Suspect]
     Route: 048
  3. BIGUANIDES [Concomitant]

REACTIONS (1)
  - Hypoglycaemic coma [None]
